FAERS Safety Report 9889719 (Version 1)
Quarter: 2014Q1

REPORT INFORMATION
  Report Type: Spontaneous
  Country: EC (occurrence: EC)
  Receive Date: 20140211
  Receipt Date: 20140211
  Transmission Date: 20141002
  Serious: Yes (Death)
  Sender: FDA-Public Use
  Company Number: EC-PFIZER INC-2014038555

PATIENT
  Age: 12 Year
  Sex: Female

DRUGS (1)
  1. LYRICA [Suspect]
     Indication: NEOPLASM MALIGNANT
     Dosage: 75 MG, 2X/DAY
     Route: 048

REACTIONS (2)
  - Off label use [Fatal]
  - Death [Fatal]
